FAERS Safety Report 8363015-7 (Version None)
Quarter: 2012Q2

REPORT INFORMATION
  Report Type: 
  Country: None (occurrence: None)
  Receive Date: 20120516
  Receipt Date: 20110930
  Transmission Date: 20120825
  Serious: Yes (Hospitalization)
  Sender: FDA-Public Use
  Company Number: US-ALEXION-A201101420

PATIENT
  Sex: Male
  Weight: 74.4 kg

DRUGS (11)
  1. COUMADIN [Concomitant]
     Dosage: 7.5 MG, QD
     Route: 048
     Dates: start: 20110801
  2. PROTONIX [Concomitant]
     Dosage: 40 MG, QD
     Route: 048
  3. SOLIRIS [Suspect]
     Indication: PAROXYSMAL NOCTURNAL HAEMOGLOBINURIA
     Dosage: UNK, QWK
     Route: 042
     Dates: start: 20110729, end: 20110819
  4. AMBIEN [Concomitant]
     Indication: SLEEP DISORDER
     Dosage: 10 MG, QHS, PRN
     Route: 048
  5. NORCO [Concomitant]
     Indication: PAIN
     Dosage: 10MG-650MG, Q4HR, PRN
     Route: 048
  6. VIAGRA [Concomitant]
     Dosage: 50 MG, PRN
     Route: 048
  7. LORAZEPAM [Concomitant]
     Indication: NAUSEA
     Dosage: 1 MG, Q4HR, PRN
  8. COUMADIN [Concomitant]
     Dosage: 3.75 MG, QD
     Route: 048
  9. SOLIRIS [Suspect]
     Dosage: 900 MG, Q2W
     Route: 042
     Dates: start: 20110101
  10. FOLIC ACID [Concomitant]
     Dosage: 1 MG, QD
     Route: 048
  11. FERROUS SULFATE TAB [Concomitant]
     Indication: MINERAL SUPPLEMENTATION
     Dosage: 325 MG, QD
     Route: 048

REACTIONS (16)
  - FOOD POISONING [None]
  - HEADACHE [None]
  - MUSCLE SPASMS [None]
  - HYPOMAGNESAEMIA [None]
  - INTERNATIONAL NORMALISED RATIO DECREASED [None]
  - PARAESTHESIA [None]
  - FATIGUE [None]
  - ASTHENIA [None]
  - MALAISE [None]
  - DIARRHOEA [None]
  - PYREXIA [None]
  - BLOOD BILIRUBIN INCREASED [None]
  - CHROMATURIA [None]
  - RHINORRHOEA [None]
  - BACK PAIN [None]
  - ABDOMINAL PAIN UPPER [None]
